FAERS Safety Report 8058268-9 (Version None)
Quarter: 2012Q1

REPORT INFORMATION
  Report Type: 
  Country: None (occurrence: None)
  Receive Date: 20120112
  Receipt Date: 20120102
  Transmission Date: 20120608
  Serious: Yes (Hospitalization)
  Sender: FDA-Public Use
  Company Number: DSA_48804_2012

PATIENT
  Sex: Female

DRUGS (7)
  1. DILTIAZEM HYDROCHLORIDE [Suspect]
     Indication: ATRIAL FIBRILLATION
     Dosage: ORAL
     Route: 048
     Dates: start: 20100301
  2. BUDESONIDE W/FORMOTEROL FUMARATE [Concomitant]
  3. LASIX [Concomitant]
  4. VENTOLIN [Concomitant]
  5. PREDNISOLONE [Concomitant]
  6. POTASSIUM CHLORIDE [Concomitant]
  7. WARFARIN SODIUM [Suspect]
     Indication: ATRIAL FIBRILLATION
     Dosage: 0.5 MG, QD, ORAL
     Route: 048
     Dates: start: 20100301, end: 20100301

REACTIONS (13)
  - RASH MACULO-PAPULAR [None]
  - RASH PRURITIC [None]
  - ORAL DISCOMFORT [None]
  - HEADACHE [None]
  - TOXIC SKIN ERUPTION [None]
  - PYREXIA [None]
  - ORAL MUCOSAL ERUPTION [None]
  - PURPURA [None]
  - EOSINOPHILIA [None]
  - RASH GENERALISED [None]
  - OEDEMA PERIPHERAL [None]
  - DERMATITIS EXFOLIATIVE [None]
  - CELL DEATH [None]
